FAERS Safety Report 5234114-3 (Version None)
Quarter: 2007Q1

REPORT INFORMATION
  Report Type: 
  Country: None (occurrence: None)
  Receive Date: 20070208
  Receipt Date: 20070130
  Transmission Date: 20070707
  Serious: Yes (Other)
  Sender: FDA-Public Use
  Company Number: BR-PFIZER INC-2007008667

PATIENT
  Sex: Male

DRUGS (4)
  1. EPELIN KAPSEALS [Suspect]
     Indication: EPILEPSY
     Route: 048
     Dates: start: 19720101, end: 20060101
  2. PHENYTOIN SODIUM [Suspect]
     Indication: EPILEPSY
     Route: 048
  3. TEGRETOL [Concomitant]
     Route: 048
  4. DIAZEPAM [Concomitant]
     Route: 065

REACTIONS (6)
  - ABNORMAL DREAMS [None]
  - AGITATION [None]
  - AMNESIA [None]
  - ANXIETY [None]
  - THINKING ABNORMAL [None]
  - TREMOR [None]
